FAERS Safety Report 8546957 (Version 4)
Quarter: 2013Q2

REPORT INFORMATION
  Report Type: Spontaneous
  Country: US (occurrence: US)
  Receive Date: 20120504
  Receipt Date: 20130422
  Transmission Date: 20140414
  Serious: No
  Sender: FDA-Public Use
  Company Number: US-PFIZER INC-2012108127

PATIENT
  Age: 5 Year
  Sex: Female
  Weight: 13.61 kg

DRUGS (5)
  1. CHILDRENS ADVIL [Suspect]
     Indication: BODY TEMPERATURE INCREASED
     Dosage: 100 MG, THREE TIMES A DAY
     Route: 048
     Dates: start: 20120121, end: 20120123
  2. CHILDRENS ADVIL [Suspect]
     Indication: PYREXIA
     Dosage: 100 MG, DAILY
     Route: 048
     Dates: start: 20120128, end: 20120129
  3. CHILDRENS ADVIL [Suspect]
     Indication: MALAISE
  4. CHILDRENS ADVIL [Suspect]
     Indication: STOMATITIS
  5. CHILDRENS ADVIL [Suspect]
     Indication: ORAL PAIN

REACTIONS (8)
  - Hypersensitivity [Recovered/Resolved]
  - Rash generalised [Recovered/Resolved]
  - Anxiety [Recovered/Resolved]
  - Swelling face [Recovered/Resolved]
  - Furuncle [Recovered/Resolved]
  - Pruritus generalised [Recovered/Resolved]
  - Tonsillitis [Unknown]
  - Lymphadenopathy [Unknown]
